FAERS Safety Report 9484825 (Version 1)
Quarter: 2013Q3

REPORT INFORMATION
  Report Type: Spontaneous
  Country: FR (occurrence: FR)
  Receive Date: 20130828
  Receipt Date: 20130828
  Transmission Date: 20140515
  Serious: Yes (Hospitalization)
  Sender: FDA-Public Use
  Company Number: FR-GLAXOSMITHKLINE-B0916721A

PATIENT
  Age: 62 Year
  Sex: Male

DRUGS (4)
  1. DEROXAT [Suspect]
     Indication: ANXIETY DISORDER
     Dosage: 20MG PER DAY
     Route: 048
     Dates: start: 2013, end: 20130515
  2. OLMETEC [Concomitant]
     Route: 048
  3. XANAX [Concomitant]
     Dosage: .25MG PER DAY
     Route: 048
  4. BETASERC [Concomitant]
     Dosage: 24MG PER DAY
     Route: 048

REACTIONS (10)
  - Dyskinesia [Recovered/Resolved]
  - Hypertonia [Recovered/Resolved]
  - Aphasia [Recovered/Resolved]
  - Fall [Recovered/Resolved]
  - Muscle contractions involuntary [Recovered/Resolved]
  - Malaise [Recovered/Resolved]
  - Loss of consciousness [Recovered/Resolved]
  - Amnesia [Recovered/Resolved]
  - Convulsive threshold lowered [Recovered/Resolved]
  - Road traffic accident [Recovered/Resolved]
